FAERS Safety Report 18714663 (Version 1)
Quarter: 2021Q1

REPORT INFORMATION
  Report Type: Spontaneous
  Country: US (occurrence: US)
  Receive Date: 20210107
  Receipt Date: 20210107
  Transmission Date: 20210419
  Serious: Yes (Other)
  Sender: FDA-Public Use
  Company Number: US-GALDERMA-US2021000006

PATIENT
  Age: 40 Year
  Sex: Male

DRUGS (4)
  1. IBUPROFEN. [Concomitant]
     Active Substance: IBUPROFEN
     Indication: PRODUCT USED FOR UNKNOWN INDICATION
     Route: 065
  2. NIVOLUMAB [Concomitant]
     Active Substance: NIVOLUMAB
     Indication: MALIGNANT MELANOMA STAGE III
     Route: 065
  3. DOXYCYCLINE. [Suspect]
     Active Substance: DOXYCYCLINE
     Indication: FOLLICULITIS
     Route: 065
  4. LOSARTAN. [Concomitant]
     Active Substance: LOSARTAN
     Indication: PRODUCT USED FOR UNKNOWN INDICATION
     Route: 065

REACTIONS (11)
  - Dermatomyositis [Not Recovered/Not Resolved]
  - Melanoma recurrent [Unknown]
  - Erythema [Unknown]
  - Periorbital swelling [Unknown]
  - Intentional product use issue [Recovered/Resolved]
  - Rash erythematous [Unknown]
  - Arthralgia [Unknown]
  - Rebound effect [Unknown]
  - Thrombocytopenia [Unknown]
  - Pain of skin [Unknown]
  - Muscular weakness [Unknown]
